FAERS Safety Report 18758025 (Version 2)
Quarter: 2021Q2

REPORT INFORMATION
  Report Type: Spontaneous
  Country: BR (occurrence: BR)
  Receive Date: 20210119
  Receipt Date: 20210428
  Transmission Date: 20210717
  Serious: Yes (Disabling)
  Sender: FDA-Public Use
  Company Number: BR-BRISTOL-MYERS SQUIBB COMPANY-BMS-2021-002913

PATIENT
  Age: 37 Year
  Sex: Female

DRUGS (2)
  1. OPDIVO [Suspect]
     Active Substance: NIVOLUMAB
     Indication: RENAL CANCER
     Dosage: HALF DOSE EVERY 15 DAYS
     Route: 042
  2. OPDIVO [Suspect]
     Active Substance: NIVOLUMAB
     Dosage: FULL DOSE EVERY 28 DAYS
     Route: 042

REACTIONS (10)
  - Ocular hyperaemia [Unknown]
  - Myopia [Unknown]
  - Visual impairment [Unknown]
  - Off label use [Unknown]
  - Refraction disorder [Unknown]
  - Eye pain [Not Recovered/Not Resolved]
  - Eye inflammation [Unknown]
  - Retinal disorder [Unknown]
  - Vision blurred [Unknown]
  - Ocular discomfort [Unknown]

NARRATIVE: CASE EVENT DATE: 20201210
